FAERS Safety Report 5418148-1 (Version None)
Quarter: 2007Q3

REPORT INFORMATION
  Report Type: 
  Country: None (occurrence: None)
  Receive Date: 20070817
  Receipt Date: 20070808
  Transmission Date: 20080115
  Serious: Yes (Hospitalization)
  Sender: FDA-Public Use
  Company Number: US-ELI_LILLY_AND_COMPANY-US200707004985

PATIENT
  Age: 55 Year
  Sex: Female
  Weight: 73.922 kg

DRUGS (3)
  1. BYETTA [Suspect]
     Indication: TYPE 2 DIABETES MELLITUS
     Dosage: 5 UG, 2/D
     Route: 058
     Dates: start: 20070717, end: 20070101
  2. HUMULIN 70/30 [Concomitant]
     Indication: TYPE 2 DIABETES MELLITUS
     Dosage: 44 U, EACH MORNING
     Dates: start: 19820101, end: 20070716
  3. HUMULIN 70/30 [Concomitant]
     Dosage: 34 U, EACH EVENING
     Dates: start: 19820101, end: 20070716

REACTIONS (10)
  - ABDOMINAL PAIN UPPER [None]
  - BLOOD GLUCOSE INCREASED [None]
  - CATHETERISATION CARDIAC [None]
  - DECREASED APPETITE [None]
  - FATIGUE [None]
  - FLANK PAIN [None]
  - HEADACHE [None]
  - NAUSEA [None]
  - RENAL PAIN [None]
  - WEIGHT DECREASED [None]
